FAERS Safety Report 4400738-6 (Version None)
Quarter: 2004Q3

REPORT INFORMATION
  Report Type: 
  Country: None (occurrence: None)
  Receive Date: 20040714
  Receipt Date: 20040630
  Transmission Date: 20050211
  Serious: Yes (Hospitalization)
  Sender: FDA-Public Use
  Company Number: 2004-BP-03409BP

PATIENT
  Age: 83 Year
  Sex: Male

DRUGS (6)
  1. FLOMAX [Suspect]
     Indication: BENIGN PROSTATIC HYPERPLASIA
     Dosage: 0.4 MG (0.4 MG, 1 OD PC), PO
     Route: 048
     Dates: start: 20040217, end: 20040323
  2. REGULAR INSULIN [Concomitant]
  3. NORVASC [Concomitant]
  4. LASIX [Concomitant]
  5. AMARYL [Concomitant]
  6. ASPIRIN [Concomitant]

REACTIONS (3)
  - BLOOD CREATININE INCREASED [None]
  - BLOOD GLUCOSE INCREASED [None]
  - GALLBLADDER DISORDER [None]
